FAERS Safety Report 4584141-4 (Version None)
Quarter: 2005Q1

REPORT INFORMATION
  Report Type: 
  Country: None (occurrence: None)
  Receive Date: 20050216
  Receipt Date: 20030711
  Transmission Date: 20050727
  Serious: Yes (Other)
  Sender: FDA-Public Use
  Company Number: PHEH2003US05990

PATIENT
  Age: 57 Year
  Sex: Male

DRUGS (1)
  1. ZOMETA [Suspect]
     Indication: METASTASES TO BONE
     Dosage: 4 MG EVERY 28 DAYS
     Route: 042
     Dates: start: 20020801, end: 20030601

REACTIONS (4)
  - FISTULA [None]
  - IMPAIRED HEALING [None]
  - OSTEONECROSIS [None]
  - PURULENT DISCHARGE [None]
